FAERS Safety Report 19634491 (Version 1)
Quarter: 2021Q3

REPORT INFORMATION
  Report Type: Spontaneous
  Country: US (occurrence: US)
  Receive Date: 20210729
  Receipt Date: 20210729
  Transmission Date: 20211014
  Serious: No
  Sender: FDA-Public Use
  Company Number: US-PARATEK PHARMACEUTICALS, INC.-2021PTK00074

PATIENT
  Age: 52 Year
  Sex: Female
  Weight: 113.38 kg

DRUGS (2)
  1. NUZYRA [Suspect]
     Active Substance: OMADACYCLINE
     Indication: INFECTION PROPHYLAXIS
  2. NUZYRA [Suspect]
     Active Substance: OMADACYCLINE
     Indication: CELLULITIS
     Dosage: 300 MG, ONCE
     Route: 048
     Dates: start: 202105, end: 202105

REACTIONS (5)
  - Abdominal pain [Recovered/Resolved]
  - Nausea [Recovered/Resolved]
  - Incorrect dose administered [Recovered/Resolved]
  - Abdominal discomfort [Recovered/Resolved]
  - Therapy cessation [Not Recovered/Not Resolved]

NARRATIVE: CASE EVENT DATE: 202105
